FAERS Safety Report 9343745 (Version 1)
Quarter: 2013Q2

REPORT INFORMATION
  Report Type: Report from Study
  Country: CA (occurrence: CA)
  Receive Date: 20130612
  Receipt Date: 20130612
  Transmission Date: 20140414
  Serious: Yes (Hospitalization, Other)
  Sender: FDA-Public Use
  Company Number: CA-JNJFOC-20130601483

PATIENT
  Age: 5 Year
  Sex: Male
  Weight: 19.96 kg

DRUGS (1)
  1. REMICADE [Suspect]
     Indication: COLITIS ULCERATIVE
     Route: 042
     Dates: start: 2011

REACTIONS (2)
  - Developmental delay [Unknown]
  - Diarrhoea haemorrhagic [Unknown]
